FAERS Safety Report 10134163 (Version 1)
Quarter: 2014Q2

REPORT INFORMATION
  Report Type: Spontaneous
  Country: US (occurrence: US)
  Receive Date: 20140428
  Receipt Date: 20140428
  Transmission Date: 20141212
  Serious: No
  Sender: FDA-Public Use
  Company Number: US-SANOFI-AVENTIS-2013SA075597

PATIENT
  Age: 62 Year
  Sex: Female

DRUGS (3)
  1. ALLEGRA [Suspect]
     Indication: HYPERSENSITIVITY
     Route: 048
  2. LITHIUM [Suspect]
     Route: 065
  3. LITHIUM [Suspect]
     Route: 065
     Dates: start: 20130721

REACTIONS (3)
  - Feeling abnormal [Not Recovered/Not Resolved]
  - Somnolence [Not Recovered/Not Resolved]
  - Drug interaction [Unknown]
